FAERS Safety Report 10656126 (Version 4)
Quarter: 2015Q2

REPORT INFORMATION
  Report Type: Spontaneous
  Country: US (occurrence: US)
  Receive Date: 20141216
  Receipt Date: 20150619
  Transmission Date: 20150821
  Serious: Yes (Hospitalization, Other)
  Sender: FDA-Public Use
  Company Number: US-BAYER-2014-184672

PATIENT
  Age: 35 Year
  Sex: Female
  Weight: 63.49 kg

DRUGS (3)
  1. MIRENA [Suspect]
     Active Substance: LEVONORGESTREL
     Indication: CONTRACEPTION
     Dosage: 20 MCG/24HR, CONT
     Route: 015
     Dates: start: 20101105
  2. OMEPRAZOLE. [Concomitant]
     Active Substance: OMEPRAZOLE
     Dosage: 20 MG, QD
     Route: 048
  3. MIRENA [Suspect]
     Active Substance: LEVONORGESTREL
     Indication: CONTRACEPTION
     Dosage: 20 MCG/24HR, CONT
     Route: 015
     Dates: start: 20091116, end: 20120731

REACTIONS (13)
  - Abdominal pain [None]
  - Injury [None]
  - Medical device discomfort [None]
  - Depressed mood [None]
  - Pelvic pain [None]
  - Uterine perforation [None]
  - Anxiety [None]
  - Genital haemorrhage [None]
  - Depression [None]
  - Emotional distress [None]
  - Fear [None]
  - Device use error [None]
  - Internal injury [None]

NARRATIVE: CASE EVENT DATE: 20100830
